FAERS Safety Report 22068281 (Version 1)
Quarter: 2023Q1

REPORT INFORMATION
  Report Type: Spontaneous
  Country: US (occurrence: US)
  Receive Date: 20230307
  Receipt Date: 20230307
  Transmission Date: 20230418
  Serious: No
  Sender: FDA-Public Use
  Company Number: US-CSLP-01209413768-V12864565-6

PATIENT
  Age: 35 Year
  Sex: Female

DRUGS (5)
  1. ANTICOAGULANT SODIUM CITRATE [Suspect]
     Active Substance: SODIUM CITRATE
     Indication: Anticoagulant therapy
     Route: 050
     Dates: start: 20230224, end: 20230224
  2. WELLBUTRIN [Concomitant]
     Active Substance: BUPROPION HYDROCHLORIDE
     Indication: Depression
  3. MOBIC [Concomitant]
     Active Substance: MELOXICAM
     Indication: Osteoarthritis
  4. TYLENOL [Concomitant]
     Active Substance: ACETAMINOPHEN
     Indication: Pain
  5. AMITRIPTYLINE [Concomitant]
     Active Substance: AMITRIPTYLINE
     Indication: Anxiety

REACTIONS (12)
  - Feeling hot [Recovered/Resolved]
  - Nausea [Recovered/Resolved]
  - Hypoaesthesia [Recovered/Resolved]
  - Movement disorder [Recovered/Resolved]
  - Dizziness [Recovered/Resolved]
  - Abdominal pain [Recovered/Resolved]
  - Paraesthesia [Recovered/Resolved]
  - Tetany [Recovered/Resolved]
  - Pallor [Recovered/Resolved]
  - Anxiety [Recovered/Resolved]
  - Thirst [Recovered/Resolved]
  - Hyperhidrosis [Recovered/Resolved]

NARRATIVE: CASE EVENT DATE: 20230224
